FAERS Safety Report 6379421-6 (Version None)
Quarter: 2009Q3

REPORT INFORMATION
  Report Type: 
  Country: None (occurrence: None)
  Receive Date: 20090928
  Receipt Date: 20090919
  Transmission Date: 20100115
  Serious: Yes (Death)
  Sender: FDA-Public Use
  Company Number: A0808907A

PATIENT
  Age: 38 Year
  Sex: Female

DRUGS (2)
  1. TYKERB [Suspect]
     Dosage: 1250MG PER DAY
     Dates: start: 20080519, end: 20080829
  2. CAPECITABINE [Suspect]
     Dates: start: 20080519, end: 20080829

REACTIONS (3)
  - DISEASE PROGRESSION [None]
  - METASTASES TO CENTRAL NERVOUS SYSTEM [None]
  - PARONYCHIA [None]
